FAERS Safety Report 26091340 (Version 1)
Quarter: 2025Q4

REPORT INFORMATION
  Report Type: Spontaneous
  Country: US (occurrence: None)
  Receive Date: 20251125
  Receipt Date: 20251125
  Transmission Date: 20260117
  Serious: No
  Sender: FDA-CTU
  Company Number: None

PATIENT
  Age: 72 Year
  Sex: Male

DRUGS (2)
  1. ADEMPAS [Suspect]
     Active Substance: RIOCIGUAT
     Indication: Pulmonary hypertension
     Dosage: 1MG TID ORAL
     Route: 048
     Dates: start: 20240705
  2. MACITENTAN [Suspect]
     Active Substance: MACITENTAN

REACTIONS (3)
  - Pulmonary hypertension [None]
  - Pulmonary embolism [None]
  - Off label use [None]

NARRATIVE: CASE EVENT DATE: 20251122
